FAERS Safety Report 6965132-2 (Version None)
Quarter: 2010Q3

REPORT INFORMATION
  Report Type: 
  Country: None (occurrence: None)
  Receive Date: 20100903
  Receipt Date: 20100826
  Transmission Date: 20110219
  Serious: Yes (Other)
  Sender: FDA-Public Use
  Company Number: US-PFIZER INC-2010109118

PATIENT
  Sex: Female
  Weight: 61.7 kg

DRUGS (10)
  1. LIPITOR [Suspect]
     Indication: BLOOD CHOLESTEROL INCREASED
     Dosage: 10 MG, DAILY
     Route: 048
     Dates: start: 20091001, end: 20100601
  2. AMOXICILLIN [Suspect]
     Dosage: 500 MG, 3X/DAY
     Dates: end: 20100101
  3. MOTRIN [Suspect]
     Indication: BACK PAIN
     Dosage: 800 MG, DAILY
     Route: 048
     Dates: end: 20100601
  4. BACTRIM [Suspect]
     Indication: SINUSITIS
     Dosage: UNK
     Dates: start: 20100101, end: 20100401
  5. ADVIL COLD AND SINUS [Suspect]
     Indication: SINUSITIS
     Dosage: 200/30 MG, DAILY
     Dates: start: 20100501, end: 20100701
  6. VIVELLE [Concomitant]
     Dosage: UNK
  7. MULTI-VITAMINS [Concomitant]
     Dosage: UNK
  8. ASPIRIN [Concomitant]
     Dosage: 81 MG, UNK
  9. CALTRATE [Concomitant]
  10. FISH OIL [Concomitant]
     Dosage: 2400 MG, UNK

REACTIONS (6)
  - BLOOD CHOLESTEROL INCREASED [None]
  - HYPERSENSITIVITY [None]
  - RASH [None]
  - RASH MORBILLIFORM [None]
  - RASH PAPULAR [None]
  - SINUSITIS [None]
